FAERS Safety Report 5247105-3 (Version None)
Quarter: 2007Q1

REPORT INFORMATION
  Report Type: 
  Country: None (occurrence: None)
  Receive Date: 20070226
  Receipt Date: 20070220
  Transmission Date: 20070707
  Serious: Yes (Hospitalization)
  Sender: FDA-Public Use
  Company Number: JP-MERCK-0702USA03746

PATIENT
  Age: 63 Year
  Sex: Male

DRUGS (3)
  1. PEPCID RPD [Suspect]
     Route: 048
     Dates: start: 20060901, end: 20070213
  2. DILTIAZEM HYDROCHLORIDE [Concomitant]
     Route: 065
  3. TEPRENONE [Concomitant]
     Route: 065

REACTIONS (1)
  - DRUG ERUPTION [None]
